FAERS Safety Report 12804868 (Version 2)
Quarter: 2016Q4

REPORT INFORMATION
  Report Type: Spontaneous
  Country: US (occurrence: US)
  Receive Date: 20161003
  Receipt Date: 20161011
  Transmission Date: 20170207
  Serious: No
  Sender: FDA-Public Use
  Company Number: US-009507513-1609USA011400

PATIENT
  Age: 34 Year
  Sex: Female
  Weight: 127.89 kg

DRUGS (4)
  1. METFORMIN [Concomitant]
     Active Substance: METFORMIN HYDROCHLORIDE
  2. NEXPLANON [Suspect]
     Active Substance: ETONOGESTREL
     Indication: CONTRACEPTION
     Dosage: LEFT ARM IMPLANT, EVERY 3 YEARS
     Route: 059
     Dates: start: 20160415
  3. INSULIN [Concomitant]
     Active Substance: INSULIN NOS
  4. IBUPROFEN. [Concomitant]
     Active Substance: IBUPROFEN

REACTIONS (6)
  - Decreased appetite [Unknown]
  - Dyspepsia [Unknown]
  - Headache [Unknown]
  - Amenorrhoea [Unknown]
  - Burning sensation [Unknown]
  - Pain in extremity [Unknown]

NARRATIVE: CASE EVENT DATE: 201604
